FAERS Safety Report 7325737-6 (Version None)
Quarter: 2011Q1

REPORT INFORMATION
  Report Type: 
  Country: None (occurrence: None)
  Receive Date: 20110218
  Receipt Date: 20110202
  Transmission Date: 20110831
  Serious: Yes (Other)
  Sender: FDA-Public Use
  Company Number: 2011SP005387

PATIENT
  Sex: Female

DRUGS (7)
  1. CYTARABINE [Concomitant]
  2. CASPOFUNGIN [Concomitant]
  3. VORICONAZOLE [Concomitant]
  4. DAUNORUBICIN [Concomitant]
  5. NOXAFIL [Suspect]
     Indication: ANTIFUNGAL TREATMENT
     Dates: start: 20110107
  6. VANCOMYCIN [Concomitant]
  7. CEFTRIAXONE [Concomitant]

REACTIONS (1)
  - HEPATOSPLENIC CANDIDIASIS [None]
